FAERS Safety Report 15453204 (Version 1)
Quarter: 2018Q4

REPORT INFORMATION
  Report Type: Spontaneous
  Country: US (occurrence: US)
  Receive Date: 20181001
  Receipt Date: 20181001
  Transmission Date: 20190204
  Serious: No
  Sender: FDA-Public Use
  Company Number: US-ALLERGAN-1809575US

PATIENT
  Sex: Male

DRUGS (2)
  1. RECTIV [Suspect]
     Active Substance: NITROGLYCERIN
     Indication: RECTAL FISSURE
     Dosage: UNK, 2-3 TIMES
     Route: 054
     Dates: start: 2017
  2. RECTIV [Suspect]
     Active Substance: NITROGLYCERIN
     Dosage: UNK UNK, BID
     Route: 054
     Dates: start: 201801, end: 201801

REACTIONS (4)
  - Intentional dose omission [Unknown]
  - Wrong technique in product usage process [Unknown]
  - Headache [Recovered/Resolved]
  - Off label use [Unknown]

NARRATIVE: CASE EVENT DATE: 2017
